FAERS Safety Report 21819099 (Version 2)
Quarter: 2023Q1

REPORT INFORMATION
  Report Type: Spontaneous
  Country: US (occurrence: US)
  Receive Date: 20230104
  Receipt Date: 20230202
  Transmission Date: 20230418
  Serious: No
  Sender: FDA-Public Use
  Company Number: US-PFIZER INC-PV202200132922

PATIENT
  Age: 8 Year
  Sex: Male

DRUGS (1)
  1. GENOTROPIN [Suspect]
     Active Substance: SOMATROPIN
     Dosage: 1.5 MG, DAILY

REACTIONS (1)
  - Device breakage [Unknown]
